FAERS Safety Report 9572262 (Version 2)
Quarter: 2013Q4

REPORT INFORMATION
  Report Type: Spontaneous
  Country: BR (occurrence: BR)
  Receive Date: 20131001
  Receipt Date: 20131001
  Transmission Date: 20140711
  Serious: Yes (Other)
  Sender: FDA-Public Use
  Company Number: ALCN2013BR004592

PATIENT
  Sex: 0

DRUGS (4)
  1. TRAVATAN [Suspect]
     Dosage: 1 GTT, QD
     Route: 047
     Dates: start: 2009, end: 2012
  2. ARADOIS [Concomitant]
     Indication: HYPERTENSION
     Dosage: 50 MG, QD
     Route: 048
     Dates: start: 2011
  3. RANITIDINE [Concomitant]
     Indication: GASTRITIS
     Dosage: 250 MG, QD
     Route: 048
     Dates: start: 2011
  4. LABIRIN [Concomitant]
     Indication: LABYRINTHITIS
     Dosage: 1 DF, BID
     Route: 048
     Dates: start: 2011

REACTIONS (2)
  - Cataract [Recovered/Resolved]
  - Drug ineffective [Recovered/Resolved]
